FAERS Safety Report 6895209-1 (Version None)
Quarter: 2010Q3

REPORT INFORMATION
  Report Type: 
  Country: None (occurrence: None)
  Receive Date: 20100802
  Receipt Date: 20100721
  Transmission Date: 20110219
  Serious: Yes (Other)
  Sender: FDA-Public Use
  Company Number: PHHY2010CA45270

PATIENT
  Sex: Female

DRUGS (7)
  1. ACLASTA [Suspect]
     Indication: OSTEOPOROSIS
     Dosage: 5 MG
     Route: 042
     Dates: start: 20090723
  2. PREDNISONE [Concomitant]
     Dosage: 6 MG
     Dates: start: 20090608
  3. PREDNISONE [Concomitant]
     Dosage: 30 MG
     Dates: start: 20090828
  4. VITAMIN D [Concomitant]
     Dosage: 1000 U, QD
  5. MAXALT [Concomitant]
     Indication: MIGRAINE
     Dosage: 10 MG, PRN
  6. PANTOPRAZOLE [Concomitant]
  7. TRAMADOL HCL [Concomitant]

REACTIONS (5)
  - DIARRHOEA [None]
  - HEADACHE [None]
  - INFLAMMATION [None]
  - NAUSEA [None]
  - POLYMYALGIA RHEUMATICA [None]
